FAERS Safety Report 4625785-0 (Version None)
Quarter: 2005Q2

REPORT INFORMATION
  Report Type: 
  Country: None (occurrence: None)
  Receive Date: 20050404
  Receipt Date: 20050207
  Transmission Date: 20051028
  Serious: Yes (Hospitalization)
  Sender: FDA-Public Use
  Company Number: PHHO2005US02367

PATIENT
  Age: 58 Year
  Sex: Female
  Weight: 97 kg

DRUGS (5)
  1. TEGASEROD [Suspect]
     Indication: DYSPEPSIA
     Dosage: 6 MG, BID
     Route: 048
     Dates: start: 20041123, end: 20050202
  2. VERAPAMIL [Concomitant]
     Indication: HYPERTENSION
  3. VASOTEC [Concomitant]
     Indication: HYPERTENSION
  4. WELLBUTRIN [Concomitant]
     Indication: DEPRESSION
  5. ASPIRIN [Concomitant]

REACTIONS (5)
  - ABDOMINAL PAIN UPPER [None]
  - DIARRHOEA [None]
  - DIVERTICULITIS [None]
  - NAUSEA [None]
  - VOMITING [None]
